FAERS Safety Report 7237965-9 (Version None)
Quarter: 2011Q1

REPORT INFORMATION
  Report Type: 
  Country: None (occurrence: None)
  Receive Date: 20110121
  Receipt Date: 20110116
  Transmission Date: 20110831
  Serious: Yes (Other)
  Sender: FDA-Public Use
  Company Number: CHPA2011FI01178

PATIENT
  Sex: Female

DRUGS (1)
  1. NICOTINELL GUM 2 MG FRUIT [Suspect]
     Dosage: 20 MG, QD
     Route: 048

REACTIONS (2)
  - DRUG DEPENDENCE [None]
  - INTENTIONAL DRUG MISUSE [None]
